FAERS Safety Report 7825891-3 (Version None)
Quarter: 2011Q4

REPORT INFORMATION
  Report Type: 
  Country: None (occurrence: None)
  Receive Date: 20111019
  Receipt Date: 20111005
  Transmission Date: 20120403
  Serious: Yes (Death, Other)
  Sender: FDA-Public Use
  Company Number: JP-ROCHE-1002932

PATIENT
  Age: 69 Year
  Sex: Male

DRUGS (5)
  1. LEVOLEUCOVORIN CALCIUM [Concomitant]
     Indication: COLON CANCER
     Route: 041
     Dates: start: 20080101, end: 20080101
  2. FLUOROURACIL [Concomitant]
     Route: 041
     Dates: start: 20080101, end: 20080101
  3. AVASTIN [Suspect]
     Indication: COLON CANCER
     Route: 041
     Dates: start: 20080101, end: 20080101
  4. FLUOROURACIL [Concomitant]
     Indication: COLON CANCER
     Route: 040
     Dates: start: 20080101, end: 20080101
  5. IRINOTECAN HCL [Concomitant]
     Indication: COLON CANCER
     Route: 041
     Dates: start: 20080101, end: 20080101

REACTIONS (3)
  - GASTROINTESTINAL PERFORATION [None]
  - DISEASE PROGRESSION [None]
  - ABSCESS [None]
